FAERS Safety Report 12145406 (Version 1)
Quarter: 2016Q1

REPORT INFORMATION
  Report Type: Spontaneous
  Country: US (occurrence: None)
  Receive Date: 20160303
  Receipt Date: 20160303
  Transmission Date: 20160526
  Serious: Yes (Other)
  Sender: FDA-Public Use
  Company Number: None

PATIENT
  Age: 26 Year
  Sex: Male
  Weight: 74.39 kg

DRUGS (6)
  1. OMEGA 3 FATTY ACIDS [Concomitant]
     Active Substance: OMEGA-3 FATTY ACIDS
  2. MELATONINE [Concomitant]
     Active Substance: MELATONIN
  3. IBUPROFEN. [Concomitant]
     Active Substance: IBUPROFEN
  4. VITAMIN C [Concomitant]
     Active Substance: ASCORBIC ACID
  5. LAMOTRIGINE 200 AAROBINDO [Suspect]
     Active Substance: LAMOTRIGINE
     Indication: BIPOLAR DISORDER
     Route: 048
     Dates: start: 20101001, end: 20160301
  6. LAMOTRIGINE 25MG TEVA [Suspect]
     Active Substance: LAMOTRIGINE
     Indication: BIPOLAR DISORDER
     Route: 048
     Dates: start: 20151001, end: 20160302

REACTIONS (2)
  - Drug ineffective [None]
  - Product substitution issue [None]
